FAERS Safety Report 10411900 (Version 1)
Quarter: 2014Q3

REPORT INFORMATION
  Report Type: Spontaneous
  Country: US (occurrence: None)
  Receive Date: 20140826
  Receipt Date: 20140826
  Transmission Date: 20150326
  Serious: Yes (Hospitalization)
  Sender: FDA-Public Use
  Company Number: None

PATIENT
  Age: 70 Year
  Sex: Female
  Weight: 76.5 kg

DRUGS (4)
  1. CYCLOPHOSPHAMIDE. [Suspect]
     Active Substance: CYCLOPHOSPHAMIDE
  2. RITUXIMAB (MOAB C2B8 ANTI CD20, CHIMERIC) [Suspect]
     Active Substance: RITUXIMAB
  3. CAMPATH [Suspect]
     Active Substance: ALEMTUZUMAB
  4. PENTOSTATIN (DEOXYCOFORMYCIN, DCF) [Suspect]
     Active Substance: PENTOSTATIN

REACTIONS (6)
  - Malaise [None]
  - Asthenia [None]
  - Corynebacterium test positive [None]
  - Pyrexia [None]
  - Sinus operation [None]
  - Abasia [None]

NARRATIVE: CASE EVENT DATE: 20140814
